FAERS Safety Report 18650081 (Version 1)
Quarter: 2020Q4

REPORT INFORMATION
  Report Type: Spontaneous
  Country: PL (occurrence: PL)
  Receive Date: 20201222
  Receipt Date: 20201222
  Transmission Date: 20210114
  Serious: Yes (Life-Threatening, Hospitalization, Other)
  Sender: FDA-Public Use
  Company Number: PL-EPIC PHARMA LLC-2020EPC00378

PATIENT
  Age: 33 Year
  Sex: Male

DRUGS (4)
  1. MIDAZOLAM. [Concomitant]
     Active Substance: MIDAZOLAM
     Route: 065
  2. MORPHINE SULFATE. [Suspect]
     Active Substance: MORPHINE SULFATE
     Dosage: 2400 MG
     Route: 042
  3. MORPHINE SULFATE. [Suspect]
     Active Substance: MORPHINE SULFATE
     Indication: PERTHES DISEASE
     Dosage: INITIAL: UNKNOWN
     Route: 065
  4. MORPHINE SULFATE. [Suspect]
     Active Substance: MORPHINE SULFATE
     Dosage: 1200 MG
     Route: 042

REACTIONS (7)
  - Suicide attempt [Recovered/Resolved]
  - Coma [Recovered/Resolved]
  - Respiratory failure [Recovered/Resolved]
  - Drug abuse [Recovered/Resolved]
  - Cardiac failure congestive [Recovered/Resolved]
  - Overdose [Recovered/Resolved]
  - Cardiogenic shock [Recovered/Resolved]
